FAERS Safety Report 10474513 (Version 1)
Quarter: 2014Q3

REPORT INFORMATION
  Report Type: Report from Study
  Country: US (occurrence: US)
  Receive Date: 20140924
  Receipt Date: 20140924
  Transmission Date: 20150326
  Serious: No
  Sender: FDA-Public Use
  Company Number: US-ALEXION-A201002298

PATIENT
  Sex: Male

DRUGS (2)
  1. SOLIRIS [Suspect]
     Active Substance: ECULIZUMAB
     Dosage: 1200 MG, Q2W
     Route: 042
     Dates: start: 20120510
  2. SOLIRIS [Suspect]
     Active Substance: ECULIZUMAB
     Indication: PAROXYSMAL NOCTURNAL HAEMOGLOBINURIA
     Dosage: 900 MG, Q2W
     Route: 042

REACTIONS (8)
  - Liver function test abnormal [Unknown]
  - Haemoglobinuria [Unknown]
  - Back pain [Recovered/Resolved]
  - Abdominal pain [Recovered/Resolved]
  - Bone loss [Unknown]
  - Nerve compression [Unknown]
  - Fatigue [Recovered/Resolved]
  - Chromaturia [Recovered/Resolved]
